FAERS Safety Report 6110168-7 (Version None)
Quarter: 2009Q1

REPORT INFORMATION
  Report Type: 
  Country: None (occurrence: None)
  Receive Date: 20090309
  Receipt Date: 20090309
  Transmission Date: 20090719
  Serious: Yes (Other)
  Sender: FDA-Public Use
  Company Number: None

PATIENT
  Age: 52 Year
  Sex: Male
  Weight: 71.2147 kg

DRUGS (1)
  1. FENTANYL TRANSDERMAL SYSTEM [Suspect]
     Indication: MUSCULOSKELETAL PAIN
     Dosage: 25 MCG/HR EVERY 72 HOURS OTHER
     Route: 050
     Dates: start: 20081204, end: 20090104

REACTIONS (6)
  - FEAR [None]
  - HEART RATE INCREASED [None]
  - HYPOAESTHESIA [None]
  - HYPOVENTILATION [None]
  - PARAESTHESIA [None]
  - THINKING ABNORMAL [None]
